FAERS Safety Report 6532511-7 (Version None)
Quarter: 2010Q1

REPORT INFORMATION
  Report Type: 
  Country: None (occurrence: None)
  Receive Date: 20100111
  Receipt Date: 20100104
  Transmission Date: 20100710
  Serious: Yes (Other)
  Sender: FDA-Public Use
  Company Number: GB-B.I. PHARMACEUTICALS,INC./RIDGEFIELD-2010-DE-00026GD

PATIENT
  Sex: Male

DRUGS (3)
  1. PRAMIPEXOLE DIHYDROCHLORIDE [Suspect]
     Indication: PARKINSON'S DISEASE
     Dosage: GRADUALLY INCREASED TO 10 MG
  2. PRAMIPEXOLE DIHYDROCHLORIDE [Suspect]
     Dosage: 10 MG
  3. SELEGILINE HCL [Suspect]
     Indication: PARKINSON'S DISEASE
     Dosage: 10 MG

REACTIONS (4)
  - DEPRESSED MOOD [None]
  - FATIGUE [None]
  - GENDER IDENTITY DISORDER [None]
  - SELF ESTEEM DECREASED [None]
